FAERS Safety Report 21402162 (Version 3)
Quarter: 2022Q4

REPORT INFORMATION
  Report Type: Spontaneous
  Country: CA (occurrence: None)
  Receive Date: 20221003
  Receipt Date: 20221230
  Transmission Date: 20230112
  Serious: Yes (Hospitalization, Other)
  Sender: FDA-Public Use
  Company Number: CA-ROCHE-3190771

PATIENT
  Age: 53 Year
  Sex: Female
  Weight: 68 kg

DRUGS (30)
  1. RITUXIMAB [Suspect]
     Active Substance: RITUXIMAB
     Indication: Rheumatoid arthritis
     Route: 041
  2. RITUXIMAB [Suspect]
     Active Substance: RITUXIMAB
     Route: 041
  3. RITUXIMAB [Suspect]
     Active Substance: RITUXIMAB
     Indication: Rheumatoid arthritis
     Route: 065
  4. RITUXIMAB [Suspect]
     Active Substance: RITUXIMAB
     Route: 065
  5. ACETAMINOPHEN [Concomitant]
     Active Substance: ACETAMINOPHEN
     Indication: Premedication
     Route: 048
  6. ACETAMINOPHEN [Concomitant]
     Active Substance: ACETAMINOPHEN
     Route: 048
  7. ACETAMINOPHEN [Concomitant]
     Active Substance: ACETAMINOPHEN
     Route: 048
  8. ACETAMINOPHEN [Concomitant]
     Active Substance: ACETAMINOPHEN
     Route: 048
  9. BOTULINUM TOXIN TYPE A [Concomitant]
     Active Substance: BOTULINUM TOXIN TYPE A
     Indication: Pain
     Dosage: POWDER FOR?SOLUTION
  10. BOTULINUM TOXIN TYPE A [Concomitant]
     Active Substance: BOTULINUM TOXIN TYPE A
     Indication: Joint stiffness
  11. CITALOPRAM [Concomitant]
     Active Substance: CITALOPRAM HYDROBROMIDE
  12. CLONIDINE [Concomitant]
     Active Substance: CLONIDINE
  13. DIPHENHYDRAMINE HYDROCHLORIDE [Concomitant]
     Active Substance: DIPHENHYDRAMINE HYDROCHLORIDE
     Route: 048
  14. DULOXETINE HYDROCHLORIDE [Concomitant]
     Active Substance: DULOXETINE HYDROCHLORIDE
     Route: 065
  15. FENTANYL [Concomitant]
     Active Substance: FENTANYL
  16. FOLIC ACID [Concomitant]
     Active Substance: FOLIC ACID
  17. GABAPENTIN [Concomitant]
     Active Substance: GABAPENTIN
  18. HYDRODIURIL [Concomitant]
     Active Substance: HYDROCHLOROTHIAZIDE
  19. HYDROMORPHONE [Concomitant]
     Active Substance: HYDROMORPHONE
  20. HYDROXYCHLOROQUINE SULFATE [Concomitant]
     Active Substance: HYDROXYCHLOROQUINE SULFATE
  21. IRON [Concomitant]
     Active Substance: IRON
  22. METHYLPREDNISOLONE [Concomitant]
     Active Substance: METHYLPREDNISOLONE
     Route: 042
  23. NAPROXEN [Concomitant]
     Active Substance: NAPROXEN
  24. NAPROXEN SODIUM [Concomitant]
     Active Substance: NAPROXEN SODIUM
  25. NORTRIPTYLINE [Concomitant]
     Active Substance: NORTRIPTYLINE
  26. PANTOPRAZOLE SODIUM [Concomitant]
     Active Substance: PANTOPRAZOLE SODIUM
  27. PREDNISONE [Concomitant]
     Active Substance: PREDNISONE
  28. SENOKOT [Concomitant]
     Active Substance: SENNOSIDES
  29. TRANDOLAPRIL [Concomitant]
     Active Substance: TRANDOLAPRIL
  30. ZOPICLONE [Concomitant]
     Active Substance: ZOPICLONE

REACTIONS (12)
  - Back disorder [Recovered/Resolved]
  - Back pain [Recovered/Resolved]
  - Bone density decreased [Recovered/Resolved]
  - Pneumonia [Recovered/Resolved]
  - Scoliosis [Recovered/Resolved]
  - Spondylitis [Recovered/Resolved]
  - Asthenia [Recovered/Resolved]
  - COVID-19 [Recovered/Resolved]
  - Cough [Recovered/Resolved]
  - Fatigue [Recovered/Resolved]
  - Productive cough [Recovered/Resolved]
  - Pyrexia [Recovered/Resolved]
